FAERS Safety Report 8191313-9 (Version None)
Quarter: 2012Q1

REPORT INFORMATION
  Report Type: 
  Country: None (occurrence: None)
  Receive Date: 20120307
  Receipt Date: 20120306
  Transmission Date: 20120608
  Serious: Yes (Other)
  Sender: FDA-Public Use
  Company Number: US-PFIZER INC-2012060105

PATIENT
  Sex: Male
  Weight: 78.01 kg

DRUGS (3)
  1. LIPITOR [Suspect]
     Indication: BLOOD CHOLESTEROL INCREASED
     Dosage: 10 MG, ONCE A DAY
     Route: 048
     Dates: start: 19990101
  2. MAXZIDE [Concomitant]
     Dosage: UNK
  3. PRILOSEC [Concomitant]
     Dosage: UNK

REACTIONS (1)
  - PROSTATE CANCER [None]
